FAERS Safety Report 7769993-9 (Version None)
Quarter: 2011Q3

REPORT INFORMATION
  Report Type: 
  Country: None (occurrence: None)
  Receive Date: 20110922
  Receipt Date: 20100517
  Transmission Date: 20111222
  Serious: Yes (Other)
  Sender: FDA-Public Use
  Company Number: US-ASTRAZENECA-2010SE50414

PATIENT
  Age: 18857 Day
  Sex: Male
  Weight: 89.8 kg

DRUGS (4)
  1. DIVALPROEX SODIUM [Concomitant]
     Dosage: 2 TAB BID
     Route: 048
     Dates: start: 20010919
  2. BUSPAR [Concomitant]
     Route: 048
     Dates: start: 20010919
  3. LORAZEPAM [Concomitant]
     Route: 048
     Dates: start: 20010919
  4. SEROQUEL [Suspect]
     Dosage: 2 TABS QHS
     Route: 048
     Dates: start: 20010919

REACTIONS (5)
  - HYPERTENSION [None]
  - TYPE 2 DIABETES MELLITUS [None]
  - CONVULSION [None]
  - IRRITABLE BOWEL SYNDROME [None]
  - ERECTILE DYSFUNCTION [None]
